FAERS Safety Report 7916702-6 (Version None)
Quarter: 2011Q4

REPORT INFORMATION
  Report Type: 
  Country: None (occurrence: None)
  Receive Date: 20111114
  Receipt Date: 20111108
  Transmission Date: 20120403
  Serious: Yes (Hospitalization, Other)
  Sender: FDA-Public Use
  Company Number: 2010SP019147

PATIENT
  Age: 24 Year
  Sex: Female
  Weight: 89.8122 kg

DRUGS (3)
  1. ADDERALL 5 [Concomitant]
  2. NUVARING [Suspect]
     Indication: CONTRACEPTION
     Dosage: VAG
     Route: 067
     Dates: start: 20090105, end: 20090831
  3. NUVARING [Suspect]
     Indication: CONTRACEPTION
     Dosage: VAG
     Route: 067
     Dates: start: 20060101, end: 20080417

REACTIONS (9)
  - MIGRAINE [None]
  - CEREBROVASCULAR ACCIDENT [None]
  - SELF-MEDICATION [None]
  - VISUAL ACUITY REDUCED [None]
  - LIBIDO DECREASED [None]
  - WEIGHT DECREASED [None]
  - ANGIOPATHY [None]
  - VASCULITIS [None]
  - DEMYELINATION [None]
